FAERS Safety Report 24546488 (Version 4)
Quarter: 2025Q2

REPORT INFORMATION
  Report Type: Spontaneous
  Country: AU (occurrence: AU)
  Receive Date: 20241024
  Receipt Date: 20250520
  Transmission Date: 20250716
  Serious: Yes (Hospitalization, Disabling, Other)
  Sender: SANDOZ
  Company Number: AU-MLMSERVICE-20240910-PI187999-00247-1

PATIENT
  Age: 58 Year
  Sex: Male
  Weight: 65 kg

DRUGS (42)
  1. DAPAGLIFLOZIN PROPANEDIOL [Suspect]
     Active Substance: DAPAGLIFLOZIN PROPANEDIOL
     Indication: Type 2 diabetes mellitus
     Route: 048
     Dates: start: 2023
  2. DIAZEPAM [Suspect]
     Active Substance: DIAZEPAM
     Indication: Anxiety
     Route: 065
     Dates: start: 2018
  3. EMTRICITABINE\TENOFOVIR DISOPROXIL FUMARATE [Suspect]
     Active Substance: EMTRICITABINE\TENOFOVIR DISOPROXIL FUMARATE
     Indication: Prophylaxis against HIV infection
     Route: 065
     Dates: start: 2023
  4. EMTRICITABINE\TENOFOVIR DISOPROXIL FUMARATE [Suspect]
     Active Substance: EMTRICITABINE\TENOFOVIR DISOPROXIL FUMARATE
     Indication: Prophylaxis against HIV infection
  5. ENTECAVIR [Suspect]
     Active Substance: ENTECAVIR
     Indication: Chronic hepatitis B
     Route: 048
     Dates: start: 2022
  6. LACTULOSE [Suspect]
     Active Substance: LACTULOSE
     Indication: Constipation
     Route: 048
     Dates: start: 2022, end: 2023
  7. LARODOPA [Suspect]
     Active Substance: LEVODOPA
     Indication: Prophylaxis against HIV infection
     Route: 065
     Dates: start: 2023
  8. BENSERAZIDE\LEVODOPA [Suspect]
     Active Substance: BENSERAZIDE\LEVODOPA
     Route: 048
     Dates: start: 2020, end: 2023
  9. BENSERAZIDE\LEVODOPA [Suspect]
     Active Substance: BENSERAZIDE\LEVODOPA
     Indication: Parkinsonism
     Route: 065
     Dates: start: 2020, end: 2023
  10. BENSERAZIDE\LEVODOPA [Suspect]
     Active Substance: BENSERAZIDE\LEVODOPA
     Indication: Parkinsonism
     Route: 048
     Dates: start: 2021
  11. METOCLOPRAMIDE [Suspect]
     Active Substance: METOCLOPRAMIDE
     Indication: Nausea
     Route: 048
     Dates: start: 2022, end: 2022
  12. METOCLOPRAMIDE DIHYDROCHLORIDE [Suspect]
     Active Substance: METOCLOPRAMIDE DIHYDROCHLORIDE
     Indication: Nausea
     Route: 048
  13. MICARDIS [Suspect]
     Active Substance: TELMISARTAN
     Indication: Hypertension
     Dosage: 40 MG, QD
     Route: 048
     Dates: start: 2018, end: 2023
  14. ONDANSETRON [Suspect]
     Active Substance: ONDANSETRON
     Indication: Nausea
     Route: 065
     Dates: start: 2023
  15. ONDANSETRON [Suspect]
     Active Substance: ONDANSETRON
     Dosage: 4 MG UP TO 3 TIMES DAILY
     Route: 048
     Dates: start: 2023, end: 2023
  16. PROCHLORPERAZINE [Suspect]
     Active Substance: PROCHLORPERAZINE
     Indication: Nausea
     Dosage: 5 MG UP TO 3 TIMES DAILY
     Route: 048
     Dates: start: 2023, end: 2023
  17. PROCHLORPERAZINE MALEATE [Suspect]
     Active Substance: PROCHLORPERAZINE MALEATE
     Indication: Nausea
     Route: 048
     Dates: start: 2023, end: 2023
  18. ATORVASTATIN [Concomitant]
     Active Substance: ATORVASTATIN
     Indication: Hypercholesterolaemia
     Dosage: LONG TERM/AT NIGHT
     Route: 048
     Dates: start: 2018
  19. BUDESONIDE\FORMOTEROL [Concomitant]
     Active Substance: BUDESONIDE\FORMOTEROL
     Indication: Chronic obstructive pulmonary disease
     Dosage: BUDESONIDE+FORMOTEROL 400+12 MICROGRAMS INHALED TWICE DAILY
     Route: 055
     Dates: start: 2018
  20. DAPAGLIFLOZIN [Concomitant]
     Active Substance: DAPAGLIFLOZIN
     Indication: Type 2 diabetes mellitus
     Dosage: 10 MG, QD; IN THE MORNING
     Route: 048
     Dates: start: 2018, end: 2023
  21. DIAZEPAM [Concomitant]
     Active Substance: DIAZEPAM
     Indication: Anxiety
     Dosage: LONG TERM/ AT NIGHT
     Route: 048
     Dates: start: 2018
  22. EMTRICITABINE\TENOFOVIR [Concomitant]
     Active Substance: EMTRICITABINE\TENOFOVIR
     Indication: Prophylaxis against HIV infection
     Dosage: TENOFOVIR+EMTRICITABINE 300+200 MG IN THE MORNING
     Route: 065
     Dates: start: 2023, end: 2023
  23. ENTECAVIR [Concomitant]
     Active Substance: ENTECAVIR
     Indication: Chronic hepatitis B
     Dosage: IN THE EVENING
     Route: 048
     Dates: start: 2022
  24. FENOFIBRATE [Concomitant]
     Active Substance: FENOFIBRATE
     Indication: Hypercholesterolaemia
     Dosage: LONG TERM/IN THE MORNING
     Route: 048
     Dates: start: 2018
  25. INSULIN GLARGINE [Concomitant]
     Active Substance: INSULIN GLARGINE
     Indication: Type 2 diabetes mellitus
     Dosage: 30 UNITS/LONG TERM  IN THE EVENING
     Route: 058
     Dates: start: 2018, end: 2023
  26. BENSERAZIDE\LEVODOPA [Concomitant]
     Active Substance: BENSERAZIDE\LEVODOPA
     Indication: Parkinsonism
     Dosage: LEVODOPA+BENSERAZIDE 100+25 MG ORALLY 3 TIMES DAILY
     Route: 048
     Dates: start: 2020, end: 2023
  27. LEVOTHYROXINE [Concomitant]
     Active Substance: LEVOTHYROXINE
     Dosage: 100 MICROGRAMS DAILY MONDAY TO FRIDAY, AND 150 MICROGRAMS DAILY SATURDAY AND SUNDAY
     Route: 065
     Dates: start: 2018
  28. LEVOTHYROXINE [Concomitant]
     Active Substance: LEVOTHYROXINE
     Indication: Thyroid hormone replacement therapy
     Dosage: 100 MICROGRAMS DAILY MONDAY TO FRIDAY, AND 150 MICROGRAMS DAILY SATURDAY AND SUNDAY
     Route: 065
     Dates: start: 2018
  29. LINAGLIPTIN\METFORMIN HYDROCHLORIDE [Concomitant]
     Active Substance: LINAGLIPTIN\METFORMIN HYDROCHLORIDE
     Indication: Type 2 diabetes mellitus
     Dosage: LINAGLIPTIN+METFORMIN 2.5 MG+1 G ORALLY TWICE DAILY
     Route: 048
     Dates: start: 2018
  30. METOCLOPRAMIDE [Concomitant]
     Active Substance: METOCLOPRAMIDE
     Indication: Nausea
     Dosage: IN THE MORNING
     Route: 048
     Dates: start: 2022, end: 2023
  31. ACETAMINOPHEN [Concomitant]
     Active Substance: ACETAMINOPHEN
     Indication: Pain
     Route: 048
     Dates: start: 2018
  32. ACETAMINOPHEN [Concomitant]
     Active Substance: ACETAMINOPHEN
     Indication: Pain
     Route: 048
  33. ACETAMINOPHEN [Concomitant]
     Active Substance: ACETAMINOPHEN
     Indication: Cervical spinal stenosis
     Route: 065
  34. ACETAMINOPHEN [Concomitant]
     Active Substance: ACETAMINOPHEN
     Indication: Spinal osteoarthritis
     Route: 065
  35. QUETIAPINE [Concomitant]
     Active Substance: QUETIAPINE
     Indication: Bipolar disorder
     Dosage: MODIFIED RELEASE/LONG TERM AT NIGHT
     Route: 048
     Dates: start: 2018
  36. ALBUTEROL [Concomitant]
     Active Substance: ALBUTEROL
     Indication: Chronic obstructive pulmonary disease
     Route: 055
     Dates: start: 2018
  37. TELMISARTAN [Concomitant]
     Active Substance: TELMISARTAN
     Indication: Hypertension
     Dosage: LONG TERM/ IN THE MORNING
     Route: 048
     Dates: start: 2018, end: 2023
  38. TEMAZEPAM [Concomitant]
     Active Substance: TEMAZEPAM
     Indication: Chronic hepatitis B
     Dosage: 10 MG AT NIGHT AND 10 MG AS REQUIRED
     Route: 065
     Dates: start: 2022, end: 2023
  39. TEMAZEPAM [Concomitant]
     Active Substance: TEMAZEPAM
     Indication: Insomnia
     Route: 065
     Dates: start: 2022, end: 2023
  40. TEMAZEPAM [Concomitant]
     Active Substance: TEMAZEPAM
     Route: 048
     Dates: start: 2022
  41. TIOTROPIUM [Concomitant]
     Active Substance: TIOTROPIUM
     Indication: Chronic obstructive pulmonary disease
     Dosage: IN THE MORNING  INTERVAL: 1 DAY
     Route: 055
     Dates: start: 2018
  42. VORTIOXETINE [Concomitant]
     Active Substance: VORTIOXETINE
     Indication: Bipolar disorder
     Dosage: IN THE MORNING
     Route: 048
     Dates: start: 2021

REACTIONS (12)
  - Acute kidney injury [Recovered/Resolved]
  - Constipation [Unknown]
  - Euglycaemic diabetic ketoacidosis [Unknown]
  - Fall [Unknown]
  - Mobility decreased [Unknown]
  - Nephropathy toxic [Unknown]
  - Parkinsonism [Recovered/Resolved]
  - Starvation ketoacidosis [Recovering/Resolving]
  - Dehydration [Unknown]
  - Starvation [Unknown]
  - Hypophagia [Unknown]
  - Nausea [Recovering/Resolving]

NARRATIVE: CASE EVENT DATE: 20230101
